FAERS Safety Report 7469078-5 (Version None)
Quarter: 2011Q2

REPORT INFORMATION
  Report Type: 
  Country: None (occurrence: None)
  Receive Date: 20110429
  Receipt Date: 20110414
  Transmission Date: 20111010
  Serious: Yes (Death, Other)
  Sender: FDA-Public Use
  Company Number: ALA_02004_2011

PATIENT
  Sex: Female
  Weight: 67.586 kg

DRUGS (53)
  1. ISORDIL [Concomitant]
  2. RENAGEL [Concomitant]
  3. FLAGYL [Concomitant]
  4. NITROGLYCERIN [Concomitant]
  5. ALBUTEROL [Concomitant]
  6. CLONIDINE [Concomitant]
  7. GEMFIBROZIL [Concomitant]
  8. VITAMIN B-12 [Concomitant]
  9. ZOLPIDEM [Concomitant]
  10. CALCIUM ANTACID [Concomitant]
  11. REGLAN [Suspect]
     Indication: VOMITING
     Dosage: (10 MG QID ORAL), (10 MG ORAL), (10 MG ORAL), (10 MG ORAL), (10 MG QID ORAL)
     Route: 048
     Dates: start: 20090301, end: 20091101
  12. REGLAN [Suspect]
     Indication: NAUSEA
     Dosage: (10 MG QID ORAL), (10 MG ORAL), (10 MG ORAL), (10 MG ORAL), (10 MG QID ORAL)
     Route: 048
     Dates: start: 20090301, end: 20091101
  13. REGLAN [Suspect]
     Indication: VOMITING
     Dosage: (10 MG QID ORAL), (10 MG ORAL), (10 MG ORAL), (10 MG ORAL), (10 MG QID ORAL)
     Route: 048
     Dates: start: 20080122, end: 20080801
  14. REGLAN [Suspect]
     Indication: NAUSEA
     Dosage: (10 MG QID ORAL), (10 MG ORAL), (10 MG ORAL), (10 MG ORAL), (10 MG QID ORAL)
     Route: 048
     Dates: start: 20080122, end: 20080801
  15. REGLAN [Suspect]
     Indication: VOMITING
     Dosage: (10 MG QID ORAL), (10 MG ORAL), (10 MG ORAL), (10 MG ORAL), (10 MG QID ORAL)
     Route: 048
     Dates: start: 20090201, end: 20090301
  16. REGLAN [Suspect]
     Indication: NAUSEA
     Dosage: (10 MG QID ORAL), (10 MG ORAL), (10 MG ORAL), (10 MG ORAL), (10 MG QID ORAL)
     Route: 048
     Dates: start: 20090201, end: 20090301
  17. REGLAN [Suspect]
     Indication: VOMITING
     Dosage: (10 MG QID ORAL), (10 MG ORAL), (10 MG ORAL), (10 MG ORAL), (10 MG QID ORAL)
     Route: 048
     Dates: end: 20070101
  18. REGLAN [Suspect]
     Indication: NAUSEA
     Dosage: (10 MG QID ORAL), (10 MG ORAL), (10 MG ORAL), (10 MG ORAL), (10 MG QID ORAL)
     Route: 048
     Dates: end: 20070101
  19. REGLAN [Suspect]
     Indication: VOMITING
     Dosage: (10 MG QID ORAL), (10 MG ORAL), (10 MG ORAL), (10 MG ORAL), (10 MG QID ORAL)
     Route: 048
     Dates: start: 20080901, end: 20090201
  20. REGLAN [Suspect]
     Indication: NAUSEA
     Dosage: (10 MG QID ORAL), (10 MG ORAL), (10 MG ORAL), (10 MG ORAL), (10 MG QID ORAL)
     Route: 048
     Dates: start: 20080901, end: 20090201
  21. CITALOPRAM [Concomitant]
  22. MINOXIDIL [Concomitant]
  23. EVISTA [Concomitant]
  24. AGGRENOX [Concomitant]
  25. DOXYCYCLINE HYCLATE [Concomitant]
  26. ZESTRIL [Concomitant]
  27. ZOFRAN [Concomitant]
  28. PLAVIX [Concomitant]
  29. PRILOSEC [Concomitant]
  30. LISINOPRIL [Concomitant]
  31. RANOLAZINE [Concomitant]
  32. DIATX [Concomitant]
  33. PERCOCET [Concomitant]
  34. ASPIRIN [Concomitant]
  35. BICARBONATE SODIUM [Concomitant]
  36. LIPITOR [Concomitant]
  37. IMDUR [Concomitant]
  38. BENADRYL [Concomitant]
  39. METOPROLOL TARTRATE [Concomitant]
  40. ROCALTROL [Concomitant]
  41. POLYETHYLENE GLYCOL [Concomitant]
  42. NORVASC [Concomitant]
  43. KEFLEX [Concomitant]
  44. HUMALIN [Concomitant]
  45. DARVOCET [Concomitant]
  46. NOVOLOG [Concomitant]
  47. ZOLOFT [Concomitant]
  48. REQUIP [Concomitant]
  49. FOLBEE [Concomitant]
  50. IZOFRAN [Concomitant]
  51. NEXIUM [Concomitant]
  52. ZOFRAN [Concomitant]
  53. PROTONIX [Concomitant]

REACTIONS (56)
  - EMOTIONAL DISORDER [None]
  - MUSCULAR WEAKNESS [None]
  - LIPOMA [None]
  - CEREBRAL INFARCTION [None]
  - TACHYCARDIA [None]
  - BRADYCARDIA [None]
  - CHEST DISCOMFORT [None]
  - PRESYNCOPE [None]
  - DYSARTHRIA [None]
  - ACUTE MYOCARDIAL INFARCTION [None]
  - IMPAIRED GASTRIC EMPTYING [None]
  - LACERATION [None]
  - REFUSAL OF TREATMENT BY RELATIVE [None]
  - ECONOMIC PROBLEM [None]
  - WOUND [None]
  - HEAD INJURY [None]
  - SOFT TISSUE HAEMORRHAGE [None]
  - RESTLESS LEGS SYNDROME [None]
  - PARKINSON'S DISEASE [None]
  - CHEST PAIN [None]
  - DEHYDRATION [None]
  - FALL [None]
  - DIZZINESS [None]
  - ARTHRALGIA [None]
  - CONTUSION [None]
  - CEREBROVASCULAR ACCIDENT [None]
  - SPEECH DISORDER [None]
  - SUBDURAL HAEMATOMA [None]
  - SUBARACHNOID HAEMORRHAGE [None]
  - TIBIA FRACTURE [None]
  - GASTROENTERITIS VIRAL [None]
  - HAEMODIALYSIS COMPLICATION [None]
  - VIITH NERVE PARALYSIS [None]
  - BUNDLE BRANCH BLOCK [None]
  - HYPERTENSIVE CRISIS [None]
  - HYPOGLYCAEMIA [None]
  - CARDIO-RESPIRATORY ARREST [None]
  - TREMOR [None]
  - ABDOMINAL PAIN UPPER [None]
  - MYOCARDIAL ISCHAEMIA [None]
  - OEDEMA PERIPHERAL [None]
  - CONVULSION [None]
  - TARDIVE DYSKINESIA [None]
  - PARKINSONISM [None]
  - NAUSEA [None]
  - TRANSIENT ISCHAEMIC ATTACK [None]
  - NECK PAIN [None]
  - ATRIOVENTRICULAR BLOCK FIRST DEGREE [None]
  - EXTRAPYRAMIDAL DISORDER [None]
  - INJURY [None]
  - VOMITING [None]
  - ANKLE FRACTURE [None]
  - SYNCOPE [None]
  - EXTRADURAL HAEMATOMA [None]
  - HEADACHE [None]
  - RESPIRATORY DISTRESS [None]
